FAERS Safety Report 6936868-4 (Version None)
Quarter: 2010Q3

REPORT INFORMATION
  Report Type: 
  Country: None (occurrence: None)
  Receive Date: 20100823
  Receipt Date: 20100816
  Transmission Date: 20110219
  Serious: Yes (Hospitalization)
  Sender: FDA-Public Use
  Company Number: US-B.I. PHARMACEUTICALS,INC./RIDGEFIELD-2010-BP-09222BP

PATIENT
  Sex: Female

DRUGS (2)
  1. MOBIC [Suspect]
     Indication: SPINAL OSTEOARTHRITIS
     Dosage: 15 MG
     Route: 048
     Dates: start: 20100101, end: 20100201
  2. MOBIC [Suspect]
     Dosage: 15 MG
     Route: 048
     Dates: start: 20100301

REACTIONS (2)
  - ACCIDENT [None]
  - HIP FRACTURE [None]
